FAERS Safety Report 7146665-5 (Version None)
Quarter: 2010Q4

REPORT INFORMATION
  Report Type: 
  Country: None (occurrence: None)
  Receive Date: 20101208
  Receipt Date: 20101201
  Transmission Date: 20110411
  Serious: Yes (Other)
  Sender: FDA-Public Use
  Company Number: BE-BAXTER-2010BH029445

PATIENT
  Age: 50 Year
  Sex: Female

DRUGS (6)
  1. HEPARIN SODIUM INJECTION [Suspect]
     Indication: ANTICOAGULANT THERAPY
     Route: 041
  2. HEPARIN SODIUM INJECTION [Suspect]
     Route: 041
  3. ACETYLSALICYLIC ACID [Suspect]
     Indication: ANTICOAGULANT THERAPY
     Route: 065
  4. ACETYLSALICYLIC ACID [Suspect]
     Route: 065
  5. CLOPIDOGREL [Suspect]
     Indication: ANTICOAGULANT THERAPY
     Route: 065
  6. CLOPIDOGREL [Suspect]
     Route: 065

REACTIONS (4)
  - CEREBRAL INFARCTION [None]
  - HYPOTENSION [None]
  - MONOPARESIS [None]
  - RETROPERITONEAL HAEMATOMA [None]
